FAERS Safety Report 5361939-6 (Version None)
Quarter: 2007Q2

REPORT INFORMATION
  Report Type: 
  Country: None (occurrence: None)
  Receive Date: 20070619
  Receipt Date: 20070612
  Transmission Date: 20071010
  Serious: Yes (Hospitalization, Other)
  Sender: FDA-Public Use
  Company Number: SE-AVENTIS-200712946EU

PATIENT
  Age: 72 Year
  Sex: Female

DRUGS (29)
  1. ENOXAPARIN SODIUM [Suspect]
     Route: 058
     Dates: start: 20061001, end: 20061008
  2. DALACIN                            /00166002/ [Concomitant]
     Indication: ANTIBIOTIC PROPHYLAXIS
     Dates: start: 20061002, end: 20061002
  3. NAROPIN [Concomitant]
     Dates: start: 20061002, end: 20061002
  4. NAROPIN [Concomitant]
     Dates: start: 20061003, end: 20061003
  5. NAROPIN [Concomitant]
     Dates: start: 20061004, end: 20061004
  6. NAROPIN [Concomitant]
     Dates: start: 20061005, end: 20061005
  7. STESOLID [Concomitant]
     Indication: PREMEDICATION
     Dates: start: 20061002, end: 20061002
  8. PROPOFOL [Concomitant]
     Dates: start: 20061002, end: 20061002
  9. CYCLOKAPRON [Concomitant]
     Dates: start: 20061002, end: 20061002
  10. MARCAIN SPINAL                     /00330102/ [Concomitant]
     Dates: start: 20061002, end: 20061002
  11. KETOGAN                            /00129101/ [Concomitant]
     Dates: start: 20061002, end: 20061002
  12. KETOGAN                            /00129101/ [Concomitant]
     Dates: start: 20061003, end: 20061003
  13. ZOFRAN [Concomitant]
     Indication: NAUSEA
     Dates: start: 20061002, end: 20061002
  14. TROMBYL [Concomitant]
     Route: 048
     Dates: start: 20060704, end: 20060923
  15. LEVAXIN [Concomitant]
     Dates: start: 20060320
  16. ATENOLOL [Concomitant]
     Indication: HYPERTENSION
     Dates: start: 20040211
  17. VOLTAREN [Concomitant]
     Dates: start: 20060501, end: 20060928
  18. ACETAMINOPHEN [Concomitant]
     Dates: start: 20061002, end: 20061002
  19. ACETAMINOPHEN [Concomitant]
     Dates: start: 20061003
  20. PRIMPERAN                          /00041901/ [Concomitant]
     Indication: NAUSEA
     Dates: start: 20061003, end: 20061003
  21. PRIMPERAN                          /00041901/ [Concomitant]
     Dates: start: 20061005, end: 20061005
  22. DEXOFEN [Concomitant]
     Dates: start: 20061005, end: 20061005
  23. DEXOFEN [Concomitant]
     Dates: start: 20061006, end: 20061006
  24. ERCO-FER [Concomitant]
     Dates: start: 20061007, end: 20061009
  25. ACETYLCYSTEINE [Concomitant]
     Dates: start: 20061005, end: 20061005
  26. TRADOLAN [Concomitant]
     Dates: start: 20061002, end: 20061002
  27. TRADOLAN [Concomitant]
     Dates: start: 20061003, end: 20061003
  28. TRADOLAN [Concomitant]
     Dates: start: 20061004, end: 20061004
  29. TRADOLAN [Concomitant]
     Dates: start: 20061005, end: 20061005

REACTIONS (2)
  - ANAEMIA [None]
  - ARRHYTHMIA [None]
